FAERS Safety Report 24455527 (Version 2)
Quarter: 2024Q4

REPORT INFORMATION
  Report Type: Report from Study
  Country: US (occurrence: US)
  Receive Date: 20241017
  Receipt Date: 20241018
  Transmission Date: 20250115
  Serious: No
  Sender: ROCHE
  Company Number: US-ROCHE-3490186

PATIENT
  Age: 66 Year
  Sex: Female

DRUGS (11)
  1. RITUXAN [Suspect]
     Active Substance: RITUXIMAB
     Indication: Arteritis
     Route: 065
  2. FOLVITE [Concomitant]
     Active Substance: FOLIC ACID
     Dosage: 1 MG TAB ONCE DAILY FOR 90 DAYS
  3. DELTASONE [Concomitant]
     Active Substance: PREDNISONE
     Dosage: 10 MG TAB BY MOUTH ONCE DAILY FOR 30 DAYS
  4. MIRALAX [Concomitant]
     Active Substance: POLYETHYLENE GLYCOL 3350
     Dosage: 17 G BY MOUTH ONCE DAILY
  5. PROTONIX [Concomitant]
     Active Substance: PANTOPRAZOLE SODIUM
     Dosage: 40 MG DR TABLET BY MOUTH TWICE DAILY
  6. LANTUS [Concomitant]
     Active Substance: INSULIN GLARGINE
     Dosage: ADMINISTER 2 UNITS SQ AT BEDTIME
  7. GLUCOTROL XL [Concomitant]
     Active Substance: GLIPIZIDE
     Dosage: TAKE ONE TABLET WITH BREAK FAST
  8. NOVOLIN NOS [Concomitant]
     Active Substance: INSULIN HUMAN
     Dosage: ADMINISTER 15 UNITS SQ EVERY MORNING
  9. LIPITOR [Concomitant]
     Active Substance: ATORVASTATIN CALCIUM
     Dosage: 40 MG TAB BY MOUTH AT BEDTIME
  10. LOPRESSOR [Concomitant]
     Active Substance: METOPROLOL TARTRATE
     Dosage: 50 MG TAB BY MOUTH TWICE DAILY
  11. JANUVIA [Concomitant]
     Active Substance: SITAGLIPTIN PHOSPHATE
     Dosage: 100 MG TAB BY MOUTH ONCE DAILY

REACTIONS (2)
  - Off label use [Unknown]
  - No adverse event [Unknown]
